FAERS Safety Report 21901461 (Version 1)
Quarter: 2023Q1

REPORT INFORMATION
  Report Type: Report from Study
  Country: CL (occurrence: CL)
  Receive Date: 20230123
  Receipt Date: 20230123
  Transmission Date: 20230418
  Serious: Yes (Hospitalization, Other)
  Sender: FDA-Public Use
  Company Number: CL-ABBVIE-4226874

PATIENT
  Sex: Male

DRUGS (1)
  1. HUMIRA [Suspect]
     Active Substance: ADALIMUMAB
     Indication: Crohn^s disease
     Dosage: STRENGTH: 40 MG
     Route: 058
     Dates: start: 20190426

REACTIONS (5)
  - Colonic fistula [Recovered/Resolved]
  - Malaise [Unknown]
  - Cholelithiasis [Recovered/Resolved]
  - Anaemia [Recovered/Resolved]
  - Hepatic infection [Recovered/Resolved]

NARRATIVE: CASE EVENT DATE: 20220101
